FAERS Safety Report 25701208 (Version 2)
Quarter: 2025Q3

REPORT INFORMATION
  Report Type: Spontaneous
  Country: EU (occurrence: EU)
  Receive Date: 20250819
  Receipt Date: 20250827
  Transmission Date: 20251020
  Serious: Yes (Life-Threatening, Other)
  Sender: SANOFI AVENTIS
  Company Number: EU-SANOFI-02621400

PATIENT
  Age: 49 Year
  Sex: Female

DRUGS (25)
  1. DUPIXENT [Suspect]
     Active Substance: DUPILUMAB
     Dosage: 300 MG, QOW
     Dates: start: 20240425
  2. INNOVAIR [Concomitant]
     Active Substance: BECLOMETHASONE DIPROPIONATE\FORMOTEROL
     Route: 055
     Dates: start: 20231025
  3. VAGIFEM [Concomitant]
     Active Substance: ESTRADIOL
     Route: 067
     Dates: start: 20230309
  4. ISOTRACIN [Concomitant]
     Route: 048
     Dates: start: 20230417
  5. BETAMETHASONE DIPROPIONATE [Concomitant]
     Active Substance: BETAMETHASONE DIPROPIONATE
     Dosage: 1 APPLICATION IN THE MORNING AND EVENING
     Route: 003
     Dates: start: 20201223
  6. METRONIDAZOLE [Concomitant]
     Active Substance: METRONIDAZOLE
     Dosage: 1 APPLICATION DAILY
     Route: 003
     Dates: start: 20220316
  7. TALTZ [Concomitant]
     Active Substance: IXEKIZUMAB
     Route: 058
     Dates: start: 20200909
  8. AZITHROMYCIN [Concomitant]
     Active Substance: AZITHROMYCIN
     Route: 048
     Dates: start: 20241124
  9. LOCOID [Concomitant]
     Active Substance: HYDROCORTISONE BUTYRATE
     Dosage: 1 APPLICATION DAILY
     Route: 003
     Dates: start: 20220603
  10. HYDROXOCOBALAMIN ALTERNOVA [Concomitant]
     Indication: Vitamin B12 deficiency
     Route: 030
     Dates: start: 20240115
  11. ACETAMINOPHEN [Concomitant]
     Active Substance: ACETAMINOPHEN
     Route: 048
     Dates: start: 20250820
  12. IBUPROFEN [Concomitant]
     Active Substance: IBUPROFEN
     Route: 048
     Dates: start: 20220108
  13. CETIRIZINE HYDROCHLORIDE [Concomitant]
     Active Substance: CETIRIZINE HYDROCHLORIDE
     Route: 048
     Dates: start: 20180710
  14. CETIRIZINE HYDROCHLORIDE [Concomitant]
     Active Substance: CETIRIZINE HYDROCHLORIDE
     Dosage: 1 TABLET DAILY
     Route: 048
     Dates: start: 20231212
  15. LEVOTHYROXINE [Concomitant]
     Active Substance: LEVOTHYROXINE
     Route: 048
     Dates: start: 20190704
  16. NASONEX [Concomitant]
     Active Substance: MOMETASONE FUROATE
     Dosage: 2 PUFFS ONCE DAILY. -NOTE: IN EACH NOSTRIL
     Route: 055
     Dates: start: 20210706
  17. NIZORAL [Concomitant]
     Active Substance: KETOCONAZOLE
     Route: 003
     Dates: start: 20221125
  18. PIVMECILLINAM HYDROCHLORIDE [Concomitant]
     Active Substance: PIVMECILLINAM HYDROCHLORIDE
     Dosage: 1 TABLET 3 TIMES DAILY
     Route: 048
     Dates: start: 20240604
  19. HYDROXOCOBALAMIN [Concomitant]
     Active Substance: HYDROXOCOBALAMIN
     Route: 030
     Dates: start: 20221014
  20. INSULIN ASPART [Concomitant]
     Active Substance: INSULIN ASPART
     Dates: start: 20240906
  21. BRICANYL [Concomitant]
     Active Substance: TERBUTALINE SULFATE
     Route: 055
     Dates: start: 20180710
  22. RYALTRIS [Concomitant]
     Active Substance: MOMETASONE FUROATE MONOHYDRATE\OLOPATADINE HYDROCHLORIDE
     Route: 055
     Dates: start: 20250410
  23. NOVORAPID [Concomitant]
     Active Substance: INSULIN ASPART
     Route: 058
     Dates: start: 20230331
  24. NOVORAPID [Concomitant]
     Active Substance: INSULIN ASPART
     Route: 058
     Dates: start: 20180210
  25. BETOLVEX [CYANOCOBALAMIN-TANNIN COMPLEX] [Concomitant]
     Route: 048
     Dates: start: 20230119

REACTIONS (2)
  - Breast cancer female [Unknown]
  - Breast cancer [Unknown]

NARRATIVE: CASE EVENT DATE: 20250729
